FAERS Safety Report 6641280-1 (Version None)
Quarter: 2010Q1

REPORT INFORMATION
  Report Type: 
  Country: None (occurrence: None)
  Receive Date: 20100318
  Receipt Date: 20100305
  Transmission Date: 20100710
  Serious: Yes (Other)
  Sender: FDA-Public Use
  Company Number: GB-MYLANLABS-2010S1003087

PATIENT
  Age: 64 Year
  Sex: Male
  Weight: 89 kg

DRUGS (4)
  1. AZATHIOPRINE [Suspect]
     Indication: CROHN'S DISEASE
     Route: 048
     Dates: start: 20100119
  2. AZATHIOPRINE [Suspect]
     Route: 048
     Dates: start: 20100126, end: 20100217
  3. SULFASALAZINE [Concomitant]
     Indication: CROHN'S DISEASE
     Route: 048
  4. PREDNISOLONE [Concomitant]
     Indication: CROHN'S DISEASE

REACTIONS (4)
  - INFLUENZA LIKE ILLNESS [None]
  - LIMB DISCOMFORT [None]
  - LOWER RESPIRATORY TRACT INFECTION [None]
  - RASH MACULAR [None]
